FAERS Safety Report 22039433 (Version 1)
Quarter: 2023Q1

REPORT INFORMATION
  Report Type: Spontaneous
  Country: US (occurrence: US)
  Receive Date: 20230227
  Receipt Date: 20230227
  Transmission Date: 20230417
  Serious: Yes (Other)
  Sender: FDA-Public Use
  Company Number: US-MICRO LABS LIMITED-ML2023-01010

PATIENT
  Age: 70 Year
  Sex: Female
  Weight: 53.52 kg

DRUGS (5)
  1. CROMOLYN SODIUM [Suspect]
     Active Substance: CROMOLYN SODIUM
     Indication: Mast cell activation syndrome
     Dosage: 100 MG/5 ML (4 AMPOULES)
     Route: 048
  2. CROMOLYN SODIUM [Suspect]
     Active Substance: CROMOLYN SODIUM
     Dosage: 100 MG/5 ML (4 AMPOULES)
     Route: 048
  3. CREON [Concomitant]
     Active Substance: PANCRELIPASE AMYLASE\PANCRELIPASE LIPASE\PANCRELIPASE PROTEASE
     Indication: Pancreatitis
     Dosage: EVERYDAY 3 TIMES A DAY AFTER TAKING CROMOLYN SODIUM ORAL SOLUTION FOR HER PANCREAS
  4. GAMMAGARD [Concomitant]
     Active Substance: HUMAN IMMUNOGLOBULIN G
     Indication: Immune system disorder
     Dosage: EVERY 10 DAYS FOR HER IMMUNE FAILURE
     Route: 042
  5. RIFAXIMIN [Concomitant]
     Active Substance: RIFAXIMIN
     Indication: Bacterial infection
     Dosage: EVERYDAY, 3 TIMES A DAY FOR THE BACTERIAL INFECTION FEEDING HER AND HER STOMACH

REACTIONS (24)
  - Delirium [Unknown]
  - Drug dependence [Unknown]
  - Respiratory disorder [Unknown]
  - Tongue disorder [Unknown]
  - Drug intolerance [Unknown]
  - Dyskinesia [Unknown]
  - Agitation [Unknown]
  - Tremor [Unknown]
  - Gait disturbance [Unknown]
  - Decreased appetite [Unknown]
  - Wheezing [Unknown]
  - Dizziness [Unknown]
  - Mental disorder [Unknown]
  - Dyspnoea [Unknown]
  - Headache [Unknown]
  - Musculoskeletal stiffness [Unknown]
  - Dysuria [Unknown]
  - Photosensitivity reaction [Unknown]
  - Mouth swelling [Unknown]
  - Abdominal discomfort [Unknown]
  - Chest pain [Unknown]
  - Malaise [Unknown]
  - Nausea [Unknown]
  - Rash [Unknown]
